FAERS Safety Report 5911853-X (Version None)
Quarter: 2008Q4

REPORT INFORMATION
  Report Type: 
  Country: None (occurrence: None)
  Receive Date: 20081008
  Receipt Date: 20081003
  Transmission Date: 20090506
  Serious: Yes (Other)
  Sender: FDA-Public Use
  Company Number: US-BAYER-200818675NA

PATIENT

DRUGS (2)
  1. CAMPATH [Suspect]
     Indication: DRUG USE FOR UNKNOWN INDICATION
  2. INFECTION PROPHYLAXIS [Concomitant]
     Indication: INFECTION PROPHYLAXIS

REACTIONS (1)
  - PNEUMONIA [None]
